FAERS Safety Report 14978767 (Version 1)
Quarter: 2018Q2

REPORT INFORMATION
  Report Type: Spontaneous
  Country: GB (occurrence: GB)
  Receive Date: 20180516
  Receipt Date: 20180516
  Transmission Date: 20180711
  Serious: Yes (Hospitalization)
  Sender: FDA-Public Use
  Company Number: None

PATIENT
  Age: 51 Year
  Sex: Male
  Weight: 91 kg

DRUGS (1)
  1. NEBIDO [Suspect]
     Active Substance: TESTOSTERONE UNDECANOATE
     Indication: HYPOGONADISM
     Dosage: ?          OTHER FREQUENCY:12 WEEK INTERVALS;?
     Route: 030
     Dates: start: 20080514, end: 20180413

REACTIONS (10)
  - Mood swings [None]
  - Personality change [None]
  - Breast pain [None]
  - Suicidal ideation [None]
  - Compulsions [None]
  - Libido increased [None]
  - Energy increased [None]
  - Bipolar disorder [None]
  - Stress [None]
  - Sleep disorder [None]

NARRATIVE: CASE EVENT DATE: 20180413
